FAERS Safety Report 4830866-2 (Version None)
Quarter: 2005Q4

REPORT INFORMATION
  Report Type: 
  Country: None (occurrence: None)
  Receive Date: 20051117
  Receipt Date: 20051108
  Transmission Date: 20060501
  Serious: Yes (Death)
  Sender: FDA-Public Use
  Company Number: US-AMGEN-US157545

PATIENT

DRUGS (1)
  1. PROCRIT [Suspect]
     Indication: HIV INFECTION

REACTIONS (1)
  - DEATH [None]
